FAERS Safety Report 8346700-2 (Version None)
Quarter: 2012Q2

REPORT INFORMATION
  Report Type: 
  Country: None (occurrence: None)
  Receive Date: 20120509
  Receipt Date: 20120502
  Transmission Date: 20120825
  Serious: Yes (Other)
  Sender: FDA-Public Use
  Company Number: FR-ASTRAZENECA-2011SE05649

PATIENT
  Age: 63 Year
  Sex: Female

DRUGS (5)
  1. CRESTOR [Concomitant]
     Indication: HYPERCHOLESTEROLAEMIA
     Route: 048
  2. FASLODEX [Suspect]
     Indication: BREAST CANCER METASTATIC
     Route: 030
     Dates: start: 20070101
  3. ISOPTIN [Concomitant]
     Indication: ANGINA PECTORIS
  4. ADANCOR [Concomitant]
     Indication: ANGINA PECTORIS
  5. INSULINE [Concomitant]
     Indication: DIABETES MELLITUS

REACTIONS (11)
  - BACK PAIN [None]
  - FATIGUE [None]
  - SKIN REACTION [None]
  - PRURITUS [None]
  - VOMITING [None]
  - VAGINAL DISCHARGE [None]
  - BLOOD GLUCOSE INCREASED [None]
  - NAUSEA [None]
  - HEADACHE [None]
  - VISUAL IMPAIRMENT [None]
  - HOT FLUSH [None]
